FAERS Safety Report 15547110 (Version 3)
Quarter: 2020Q1

REPORT INFORMATION
  Report Type: Spontaneous
  Country: US (occurrence: US)
  Receive Date: 20181024
  Receipt Date: 20200303
  Transmission Date: 20200409
  Serious: No
  Sender: FDA-Public Use
  Company Number: US-009507513-1810USA010294

PATIENT
  Age: 59 Year
  Sex: Male

DRUGS (3)
  1. VANCOMYCIN [Suspect]
     Active Substance: VANCOMYCIN
     Indication: OSTEOMYELITIS BACTERIAL
     Route: 048
  2. ZERBAXA [Suspect]
     Active Substance: CEFTOLOZANE SULFATE\TAZOBACTAM SODIUM
     Indication: OSTEOMYELITIS BACTERIAL
     Dosage: 0.75 GRAM, Q8H, GIVEN AS INITIAL DOSE OVER 1 HOUR FOLLOWED BY 4 HOUR INFUSIONS FOR SUBSEQUENT DOSAGE
  3. METRONIDAZOLE. [Suspect]
     Active Substance: METRONIDAZOLE
     Indication: OSTEOMYELITIS BACTERIAL
     Route: 042

REACTIONS (1)
  - Off label use [Unknown]
